FAERS Safety Report 5120078-X (Version None)
Quarter: 2006Q3

REPORT INFORMATION
  Report Type: 
  Country: None (occurrence: None)
  Receive Date: 20060928
  Receipt Date: 20060810
  Transmission Date: 20061208
  Serious: Yes (Hospitalization)
  Sender: FDA-Public Use
  Company Number: 228854

PATIENT
  Age: 43 Year
  Sex: Female
  Weight: 64.2 kg

DRUGS (4)
  1. RITUXAN [Suspect]
     Indication: RHEUMATOID ARTHRITIS
     Dosage: DAYS 1+5, INTRAVENOUS
     Route: 042
     Dates: start: 20060808, end: 20060808
  2. ACETAMINOPHEN [Concomitant]
  3. SOLU-MEDROL [Concomitant]
  4. LORATADINE [Concomitant]

REACTIONS (10)
  - ANAPHYLACTIC REACTION [None]
  - ANXIETY [None]
  - BURNING SENSATION [None]
  - EAR DISCOMFORT [None]
  - HEADACHE [None]
  - HEART RATE INCREASED [None]
  - INFUSION RELATED REACTION [None]
  - OROPHARYNGEAL SPASM [None]
  - RESPIRATORY RATE INCREASED [None]
  - URTICARIA [None]
